FAERS Safety Report 14448369 (Version 1)
Quarter: 2018Q1

REPORT INFORMATION
  Report Type: Spontaneous
  Country: US (occurrence: US)
  Receive Date: 20180126
  Receipt Date: 20180126
  Transmission Date: 20180509
  Serious: No
  Sender: FDA-Public Use
  Company Number: None

PATIENT

DRUGS (1)
  1. BURPROPION SR [Suspect]
     Active Substance: BUPROPION HYDROCHLORIDE

REACTIONS (4)
  - Vision blurred [None]
  - Constipation [None]
  - Product substitution issue [None]
  - Dry mouth [None]
